FAERS Safety Report 9363454 (Version 2)
Quarter: 2013Q3

REPORT INFORMATION
  Report Type: Spontaneous
  Country: US (occurrence: US)
  Receive Date: 20130624
  Receipt Date: 20130709
  Transmission Date: 20140515
  Serious: No
  Sender: FDA-Public Use
  Company Number: US-PFIZER INC-2013186754

PATIENT
  Age: 50 Year
  Sex: Female
  Weight: 78.01 kg

DRUGS (2)
  1. CELEBREX [Suspect]
     Indication: MIGRAINE
     Dosage: 200 MG, AS NEEDED
     Route: 048
     Dates: start: 201212, end: 20130616
  2. NORA-BE [Concomitant]
     Dosage: UNK

REACTIONS (7)
  - Off label use [Unknown]
  - Burning mouth syndrome [Not Recovered/Not Resolved]
  - Oral discomfort [Not Recovered/Not Resolved]
  - Gingival pain [Not Recovered/Not Resolved]
  - Glossodynia [Not Recovered/Not Resolved]
  - Cheilitis [Not Recovered/Not Resolved]
  - Dysphonia [Not Recovered/Not Resolved]
